FAERS Safety Report 16231419 (Version 1)
Quarter: 2019Q2

REPORT INFORMATION
  Report Type: Spontaneous
  Country: DE (occurrence: DE)
  Receive Date: 20190424
  Receipt Date: 20190424
  Transmission Date: 20190711
  Serious: Yes (Other)
  Sender: FDA-Public Use
  Company Number: DE-DRREDDYS-GER/GER/19/0109627

PATIENT
  Age: 1 Day
  Sex: Female
  Weight: 1.7 kg

DRUGS (8)
  1. BAYOTENSIN [Concomitant]
     Active Substance: NITRENDIPINE
     Indication: PRODUCT USED FOR UNKNOWN INDICATION
     Route: 064
     Dates: start: 20180613, end: 20180621
  2. RAMIPRIL. [Suspect]
     Active Substance: RAMIPRIL
     Indication: PRODUCT USED FOR UNKNOWN INDICATION
     Dosage: 10 [MG/D ]
     Route: 064
     Dates: start: 20171012, end: 20180614
  3. FENOTEROL [Concomitant]
     Active Substance: FENOTEROL
     Indication: PRODUCT USED FOR UNKNOWN INDICATION
     Route: 064
     Dates: start: 20180613, end: 20180621
  4. METHYLDOPA. [Concomitant]
     Active Substance: METHYLDOPA
     Indication: PRODUCT USED FOR UNKNOWN INDICATION
     Dosage: 750 [MG/D (250-250-250) ]
     Route: 064
     Dates: start: 20180615, end: 20180621
  5. METOPROLOL. [Suspect]
     Active Substance: METOPROLOL
     Indication: PRODUCT USED FOR UNKNOWN INDICATION
     Dosage: 50 [MG/D ]
     Route: 064
     Dates: start: 20171012, end: 20180614
  6. AMLODIPINE [Concomitant]
     Active Substance: AMLODIPINE BESYLATE
     Indication: PRODUCT USED FOR UNKNOWN INDICATION
     Dosage: 10 [MG/D ]
     Route: 064
     Dates: start: 20171012, end: 20180614
  7. CELESTAN [Concomitant]
     Active Substance: BETAMETHASONE
     Indication: PRODUCT USED FOR UNKNOWN INDICATION
     Dosage: 12 [MG/D ]
     Route: 064
     Dates: start: 20180614, end: 20180615
  8. SPIRONOLACTONE. [Concomitant]
     Active Substance: SPIRONOLACTONE
     Indication: PRODUCT USED FOR UNKNOWN INDICATION
     Dosage: 25 [MG/D ]
     Route: 064
     Dates: start: 20171012, end: 20180614

REACTIONS (5)
  - Microcephaly [Unknown]
  - Selective eating disorder [Recovered/Resolved]
  - Small for dates baby [Recovered/Resolved]
  - Neonatal respiratory failure [Recovered/Resolved]
  - Foetal exposure during pregnancy [Unknown]

NARRATIVE: CASE EVENT DATE: 20180621
